FAERS Safety Report 18961447 (Version 1)
Quarter: 2021Q1

REPORT INFORMATION
  Report Type: Spontaneous
  Country: US (occurrence: US)
  Receive Date: 20210303
  Receipt Date: 20210303
  Transmission Date: 20210420
  Serious: No
  Sender: FDA-Public Use
  Company Number: US-CELGENEUS-USA-20210206870

PATIENT
  Age: 57 Year
  Sex: Female

DRUGS (1)
  1. ZEPOSIA [Suspect]
     Active Substance: OZANIMOD HYDROCHLORIDE
     Indication: MULTIPLE SCLEROSIS
     Dosage: .92 MILLIGRAM
     Route: 048
     Dates: start: 20210116

REACTIONS (4)
  - Nausea [Recovering/Resolving]
  - Migraine [Recovering/Resolving]
  - Arthralgia [Not Recovered/Not Resolved]
  - Influenza like illness [Recovering/Resolving]

NARRATIVE: CASE EVENT DATE: 20210122
